FAERS Safety Report 24594265 (Version 1)
Quarter: 2024Q4

REPORT INFORMATION
  Report Type: Spontaneous
  Country: US (occurrence: US)
  Receive Date: 20241108
  Receipt Date: 20241108
  Transmission Date: 20250114
  Serious: No
  Sender: INSUD PHARMA
  Company Number: US-INSUD PHARMA-2411US08506

PATIENT

DRUGS (3)
  1. TESTOSTERONE [Suspect]
     Active Substance: TESTOSTERONE
     Indication: Blood testosterone decreased
     Dosage: 3 PUMPS, UNK
     Route: 061
     Dates: start: 202303
  2. TESTOSTERONE [Suspect]
     Active Substance: TESTOSTERONE
     Indication: Hypogonadism
     Dosage: 4 PUMPS, UNK
     Route: 061
     Dates: start: 202203, end: 202303
  3. TESTOSTERONE [Suspect]
     Active Substance: TESTOSTERONE
     Dosage: 2 PUMPS DAILY
     Route: 061
     Dates: start: 202112, end: 202203

REACTIONS (4)
  - Blood testosterone increased [Unknown]
  - Product with quality issue administered [Recovered/Resolved]
  - Product physical consistency issue [Recovered/Resolved]
  - Drug effect less than expected [Recovered/Resolved]

NARRATIVE: CASE EVENT DATE: 20220101
